FAERS Safety Report 13103080 (Version 8)
Quarter: 2021Q4

REPORT INFORMATION
  Report Type: Report from Study
  Country: NL (occurrence: NL)
  Receive Date: 20170110
  Receipt Date: 20211231
  Transmission Date: 20220303
  Serious: No
  Sender: FDA-Public Use
  Company Number: NL-ABBVIE-16P-114-1750988-00

PATIENT
  Age: 59 Year
  Sex: Male
  Weight: 61 kg

DRUGS (8)
  1. CARBIDOPA\LEVODOPA [Suspect]
     Active Substance: CARBIDOPA\LEVODOPA
     Indication: Parkinson^s disease
     Dosage: MD: 0.0ML, CD: 4.4ML/H, ED: 2.0ML
     Route: 050
     Dates: start: 20150126
  2. CARBIDOPA\LEVODOPA [Suspect]
     Active Substance: CARBIDOPA\LEVODOPA
     Dosage: EXTRA DOSE IS REDUCED WITH 0.5ML TO 5.5ML.
     Route: 050
     Dates: start: 20161005, end: 201611
  3. CARBIDOPA\LEVODOPA [Suspect]
     Active Substance: CARBIDOPA\LEVODOPA
     Dosage: MD: FROM 17.0ML TO 16.0ML, CD FROM 6.2ML TO 6.0 AND THE ED 5.0ML
     Route: 050
     Dates: start: 201611
  4. CARBIDOPA\LEVODOPA [Suspect]
     Active Substance: CARBIDOPA\LEVODOPA
     Dosage: MD 0.0?CD 5.4?ED 5.0
     Route: 050
  5. CARBIDOPA\LEVODOPA [Suspect]
     Active Substance: CARBIDOPA\LEVODOPA
     Dosage: MD 2.0?CD 5.0?ED: 5.0
     Route: 050
  6. CARBIDOPA\LEVODOPA [Suspect]
     Active Substance: CARBIDOPA\LEVODOPA
     Dosage: MD: 2.0, CD: 4.6, ED: 2.0
     Route: 050
  7. CARBIDOPA\LEVODOPA [Suspect]
     Active Substance: CARBIDOPA\LEVODOPA
     Dosage: CD: 4.2ML/H
     Route: 050
  8. BENSERAZIDE HYDROCHLORIDE\LEVODOPA [Concomitant]
     Active Substance: BENSERAZIDE HYDROCHLORIDE\LEVODOPA
     Indication: Unevaluable event

REACTIONS (53)
  - Muscle contractions involuntary [Not Recovered/Not Resolved]
  - Restlessness [Not Recovered/Not Resolved]
  - Poor quality sleep [Not Recovered/Not Resolved]
  - Psychiatric symptom [Not Recovered/Not Resolved]
  - Movement disorder [Not Recovered/Not Resolved]
  - Aphonia [Not Recovered/Not Resolved]
  - Musculoskeletal stiffness [Recovering/Resolving]
  - Choking [Not Recovered/Not Resolved]
  - Pollakiuria [Not Recovered/Not Resolved]
  - Speech disorder [Not Recovered/Not Resolved]
  - Time perception altered [Not Recovered/Not Resolved]
  - Arthralgia [Not Recovered/Not Resolved]
  - Fluid intake reduced [Recovered/Resolved]
  - Underdose [Recovered/Resolved]
  - Gait disturbance [Unknown]
  - Dyschezia [Recovered/Resolved]
  - Malaise [Not Recovered/Not Resolved]
  - Muscle spasms [Not Recovered/Not Resolved]
  - Nightmare [Not Recovered/Not Resolved]
  - Initial insomnia [Not Recovered/Not Resolved]
  - Tremor [Not Recovered/Not Resolved]
  - Fall [Not Recovered/Not Resolved]
  - Parkinson^s disease [Unknown]
  - Drug ineffective [Not Recovered/Not Resolved]
  - Hyperkinesia [Recovered/Resolved]
  - On and off phenomenon [Recovered/Resolved]
  - Freezing phenomenon [Recovered/Resolved]
  - Stoma site erythema [Unknown]
  - Stoma site pain [Recovered/Resolved]
  - Bradykinesia [Not Recovered/Not Resolved]
  - Insomnia [Unknown]
  - On and off phenomenon [Unknown]
  - Muscle rigidity [Not Recovered/Not Resolved]
  - Freezing phenomenon [Not Recovered/Not Resolved]
  - Stoma site discomfort [Recovered/Resolved]
  - Device use issue [Recovered/Resolved]
  - Device issue [Unknown]
  - Device issue [Recovered/Resolved]
  - Hyperkinesia [Not Recovered/Not Resolved]
  - Unevaluable event [Not Recovered/Not Resolved]
  - Gastroenteritis viral [Recovering/Resolving]
  - Weight decreased [Recovered/Resolved]
  - Dystonia [Unknown]
  - Mental impairment [Not Recovered/Not Resolved]
  - Musculoskeletal stiffness [Unknown]
  - Cognitive disorder [Not Recovered/Not Resolved]
  - Initial insomnia [Not Recovered/Not Resolved]
  - Fatigue [Not Recovered/Not Resolved]
  - Dyskinesia [Not Recovered/Not Resolved]
  - Device difficult to use [Not Recovered/Not Resolved]
  - Unevaluable event [Recovered/Resolved]
  - Unevaluable event [Not Recovered/Not Resolved]
  - Dystonia [Unknown]

NARRATIVE: CASE EVENT DATE: 20161001
